FAERS Safety Report 17454989 (Version 1)
Quarter: 2020Q1

REPORT INFORMATION
  Report Type: Spontaneous
  Country: FR (occurrence: FR)
  Receive Date: 20200225
  Receipt Date: 20200225
  Transmission Date: 20200409
  Serious: Yes (Other)
  Sender: FDA-Public Use
  Company Number: FR-ACCORD-173525

PATIENT
  Age: 40 Year
  Sex: Female

DRUGS (4)
  1. METHADONE [Suspect]
     Active Substance: METHADONE HYDROCHLORIDE
     Route: 048
     Dates: start: 2019
  2. QUETIAPINE. [Suspect]
     Active Substance: QUETIAPINE
     Route: 048
  3. MIANSERIN [Suspect]
     Active Substance: MIANSERIN
     Route: 048
     Dates: start: 2019
  4. HEROIN [Suspect]
     Active Substance: DIAMORPHINE
     Route: 045
     Dates: start: 2019

REACTIONS (1)
  - Drug abuse [Unknown]

NARRATIVE: CASE EVENT DATE: 2019
